FAERS Safety Report 9547971 (Version 1)
Quarter: 2013Q3

REPORT INFORMATION
  Report Type: Spontaneous
  Country: GB (occurrence: GB)
  Receive Date: 20130924
  Receipt Date: 20130924
  Transmission Date: 20140515
  Serious: Yes (Other)
  Sender: FDA-Public Use
  Company Number: GB-009507513-1309GBR009529

PATIENT
  Age: 87 Year
  Sex: Male
  Weight: 70 kg

DRUGS (1)
  1. MIRTAZAPINE [Suspect]
     Indication: AGITATION
     Dosage: 30 MG, UNK
     Route: 048
     Dates: start: 20130809, end: 20130821

REACTIONS (2)
  - Pain [Unknown]
  - Stomatitis [Recovered/Resolved]
